FAERS Safety Report 9675045 (Version 1)
Quarter: 2013Q4

REPORT INFORMATION
  Report Type: Spontaneous
  Country: US (occurrence: None)
  Receive Date: 20131105
  Receipt Date: 20131105
  Transmission Date: 20140711
  Serious: Yes (Life-Threatening, Hospitalization, Other)
  Sender: FDA-Public Use
  Company Number: 13-04500

PATIENT
  Age: 71 Year
  Sex: Female

DRUGS (1)
  1. ALBUTEROL SULFATE [Suspect]
     Indication: ASTHMA
     Dosage: 1 VIAL PO QD O54
     Route: 048

REACTIONS (6)
  - Atrial fibrillation [None]
  - Headache [None]
  - Hypertension [None]
  - Chest pain [None]
  - Fatigue [None]
  - Pain in extremity [None]
